FAERS Safety Report 11059298 (Version 2)
Quarter: 2015Q2

REPORT INFORMATION
  Report Type: Spontaneous
  Country: DE (occurrence: DE)
  Receive Date: 20150423
  Receipt Date: 20150513
  Transmission Date: 20150821
  Serious: Yes (Hospitalization)
  Sender: FDA-Public Use
  Company Number: PHHY2015DE027018

PATIENT
  Sex: Male

DRUGS (1)
  1. ZOMETA [Suspect]
     Active Substance: ZOLEDRONIC ACID
     Indication: OSTEOPOROSIS
     Dosage: 4 MG, ONCE PER MONTH
     Route: 042
     Dates: start: 201410, end: 201501

REACTIONS (16)
  - Thrombosis [Not Recovered/Not Resolved]
  - Pyrexia [Recovered/Resolved]
  - Rib fracture [Unknown]
  - Testicular swelling [Recovered/Resolved]
  - Alanine aminotransferase increased [Unknown]
  - Hyperhidrosis [Recovered/Resolved]
  - Thrombocytopenia [Unknown]
  - Palpitations [Recovered/Resolved]
  - Muscle atrophy [Unknown]
  - Aspartate aminotransferase increased [Unknown]
  - Gamma-glutamyltransferase increased [Unknown]
  - Blood pressure fluctuation [Unknown]
  - Fatigue [Unknown]
  - Asthenia [Unknown]
  - Palpitations [Unknown]
  - Accident [Unknown]

NARRATIVE: CASE EVENT DATE: 201410
